FAERS Safety Report 20145379 (Version 3)
Quarter: 2022Q1

REPORT INFORMATION
  Report Type: Spontaneous
  Country: US (occurrence: US)
  Receive Date: 20211203
  Receipt Date: 20220124
  Transmission Date: 20220423
  Serious: No
  Sender: FDA-Public Use
  Company Number: US-BEH-2021138902

PATIENT
  Sex: Male

DRUGS (11)
  1. HIZENTRA [Suspect]
     Active Substance: HUMAN IMMUNOGLOBULIN G
     Indication: Immunodeficiency common variable
     Dosage: 22 GRAM, QOW
     Route: 058
  2. HIZENTRA [Suspect]
     Active Substance: HUMAN IMMUNOGLOBULIN G
     Dosage: 22 GRAM, QOW
     Route: 058
     Dates: start: 201508
  3. RELUGOLIX [Concomitant]
     Active Substance: RELUGOLIX
  4. SOLIQUA 100/33 [Concomitant]
     Active Substance: INSULIN GLARGINE\LIXISENATIDE
  5. CEFDINIR [Concomitant]
     Active Substance: CEFDINIR
  6. NOVOLIN N [Concomitant]
     Active Substance: INSULIN HUMAN
  7. STARLIX [Concomitant]
     Active Substance: NATEGLINIDE
  8. DOXYCYCLINE [Concomitant]
     Active Substance: DOXYCYCLINE
  9. CEFDINIR [Concomitant]
     Active Substance: CEFDINIR
  10. LEVAQUIN [Concomitant]
     Active Substance: LEVOFLOXACIN
  11. INVOKANA [Concomitant]
     Active Substance: CANAGLIFLOZIN

REACTIONS (3)
  - Infusion site discolouration [Not Recovered/Not Resolved]
  - Swelling [Recovered/Resolved]
  - Skin discolouration [Recovered/Resolved]
